FAERS Safety Report 4941833-2 (Version None)
Quarter: 2006Q1

REPORT INFORMATION
  Report Type: 
  Country: None (occurrence: None)
  Receive Date: 20060307
  Receipt Date: 20060224
  Transmission Date: 20060701
  Serious: Yes (Death, Life-Threatening, Hospitalization)
  Sender: FDA-Public Use
  Company Number: HQWYE080301MAR06

PATIENT
  Age: 58 Year
  Sex: Female

DRUGS (2)
  1. MYLOTARG [Suspect]
     Indication: ACUTE MYELOID LEUKAEMIA
     Dosage: INTRAVENOUS
     Route: 042
     Dates: start: 20051006, end: 20051006
  2. MYLOTARG [Suspect]
     Indication: ACUTE MYELOID LEUKAEMIA
     Dosage: INTRAVENOUS
     Route: 042
     Dates: start: 20051019, end: 20051019

REACTIONS (19)
  - ASCITES [None]
  - ASPERGILLOSIS [None]
  - BACTERIA URINE IDENTIFIED [None]
  - BLOOD CULTURE POSITIVE [None]
  - CLOSTRIDIUM COLITIS [None]
  - CULTURE URINE POSITIVE [None]
  - FEBRILE NEUTROPENIA [None]
  - FUNGAL INFECTION [None]
  - HEPATIC VEIN STENOSIS [None]
  - HEPATOMEGALY [None]
  - HYPOTENSION [None]
  - INFECTION [None]
  - MALIGNANT NEOPLASM PROGRESSION [None]
  - ORAL INTAKE REDUCED [None]
  - PNEUMONIA [None]
  - SPUTUM CULTURE POSITIVE [None]
  - STAPHYLOCOCCAL INFECTION [None]
  - VENOOCCLUSIVE LIVER DISEASE [None]
  - WEIGHT INCREASED [None]
